FAERS Safety Report 7055433-4 (Version None)
Quarter: 2010Q4

REPORT INFORMATION
  Report Type: 
  Country: None (occurrence: None)
  Receive Date: 20101021
  Receipt Date: 20101012
  Transmission Date: 20110411
  Serious: Yes (Hospitalization)
  Sender: FDA-Public Use
  Company Number: DE-ASTRAZENECA-2010SE48307

PATIENT
  Sex: Female

DRUGS (2)
  1. SEROQUEL [Suspect]
     Route: 048
  2. RISPERDAL [Concomitant]

REACTIONS (2)
  - DECREASED APPETITE [None]
  - SOMNOLENCE [None]
